FAERS Safety Report 8439037-4 (Version None)
Quarter: 2012Q2

REPORT INFORMATION
  Report Type: 
  Country: None (occurrence: None)
  Receive Date: 20120615
  Receipt Date: 20120603
  Transmission Date: 20120825
  Serious: No
  Sender: FDA-Public Use
  Company Number: IL-ELI_LILLY_AND_COMPANY-IL201206001331

PATIENT
  Age: 52 Year
  Sex: Female

DRUGS (2)
  1. LORIVAN [Concomitant]
     Indication: BLOOD CHOLESTEROL INCREASED
  2. CYMBALTA [Suspect]
     Indication: DEPRESSION
     Dosage: 60 MG, UNK
     Route: 048
     Dates: start: 20120301

REACTIONS (3)
  - BLOOD THYROID STIMULATING HORMONE INCREASED [None]
  - ASPARTATE AMINOTRANSFERASE INCREASED [None]
  - GAMMA-GLUTAMYLTRANSFERASE INCREASED [None]
